FAERS Safety Report 25112455 (Version 2)
Quarter: 2025Q1

REPORT INFORMATION
  Report Type: Spontaneous
  Country: US (occurrence: US)
  Receive Date: 20250324
  Receipt Date: 20250325
  Transmission Date: 20250408
  Serious: No
  Sender: UCB
  Company Number: US-UCBSA-2024061283

PATIENT
  Age: 43 Year
  Sex: Female

DRUGS (6)
  1. BIMZELX [Suspect]
     Active Substance: BIMEKIZUMAB-BKZX
     Indication: Product used for unknown indication
  2. SPEVIGO [Suspect]
     Active Substance: SPESOLIMAB-SBZO
     Indication: Pustular psoriasis
     Route: 042
     Dates: start: 20240703, end: 2024
  3. SPEVIGO [Suspect]
     Active Substance: SPESOLIMAB-SBZO
     Route: 042
     Dates: start: 20240719
  4. SPEVIGO [Suspect]
     Active Substance: SPESOLIMAB-SBZO
     Route: 058
     Dates: start: 20240817
  5. SOLU-MEDROL [Concomitant]
     Active Substance: METHYLPREDNISOLONE SODIUM SUCCINATE
     Indication: Product used for unknown indication
  6. ZODEL [Concomitant]
     Indication: Product used for unknown indication

REACTIONS (4)
  - Hypotension [Unknown]
  - Urinary tract infection [Recovering/Resolving]
  - Pruritus [Recovering/Resolving]
  - Flank pain [Unknown]

NARRATIVE: CASE EVENT DATE: 20240703
